FAERS Safety Report 7755307-7 (Version None)
Quarter: 2011Q3

REPORT INFORMATION
  Report Type: 
  Country: None (occurrence: None)
  Receive Date: 20110914
  Receipt Date: 20110907
  Transmission Date: 20111222
  Serious: Yes (Hospitalization, Other)
  Sender: FDA-Public Use
  Company Number: 924838

PATIENT
  Age: 33 Year
  Sex: Female
  Weight: 80 kg

DRUGS (2)
  1. METHOTREXATE [Suspect]
     Indication: PSORIASIS
  2. NEORAL [Suspect]
     Indication: PSORIASIS
     Dosage: 250 MG MILLIGRAM(S),
     Dates: end: 20110413

REACTIONS (5)
  - DRUG INTERACTION [None]
  - ACUTE PSYCHOSIS [None]
  - BLOOD MAGNESIUM DECREASED [None]
  - RENAL CANCER [None]
  - DELIRIUM [None]
